FAERS Safety Report 24929442 (Version 1)
Quarter: 2025Q1

REPORT INFORMATION
  Report Type: Spontaneous
  Country: US (occurrence: None)
  Receive Date: 20250203
  Receipt Date: 20250203
  Transmission Date: 20250409
  Serious: Yes (Life-Threatening, Hospitalization, Disabling, Other)
  Sender: FDA-CTU
  Company Number: None

PATIENT

DRUGS (1)
  1. REMDESIVIR [Suspect]
     Active Substance: REMDESIVIR

REACTIONS (7)
  - Arthralgia [None]
  - Headache [None]
  - Blood glucose increased [None]
  - Contusion [None]
  - Swelling [None]
  - Injury [None]
  - Infection [None]

NARRATIVE: CASE EVENT DATE: 20250201
